FAERS Safety Report 23641287 (Version 2)
Quarter: 2024Q1

REPORT INFORMATION
  Report Type: Spontaneous
  Country: LV (occurrence: LV)
  Receive Date: 20240318
  Receipt Date: 20240318
  Transmission Date: 20240410
  Serious: Yes (Hospitalization, Other)
  Sender: FDA-Public Use
  Company Number: LV-STRIDES ARCOLAB LIMITED-2024SP002992

PATIENT
  Age: 25 Year
  Sex: Female

DRUGS (1)
  1. METHOTREXATE [Suspect]
     Active Substance: METHOTREXATE
     Indication: Ectopic pregnancy
     Dosage: UNK (SINGLE DOSE)
     Route: 065

REACTIONS (3)
  - Ruptured ectopic pregnancy [Unknown]
  - Maternal exposure during pregnancy [Unknown]
  - Off label use [Unknown]
